FAERS Safety Report 4355348-6 (Version None)
Quarter: 2004Q2

REPORT INFORMATION
  Report Type: 
  Country: None (occurrence: None)
  Receive Date: 20040505
  Receipt Date: 20040421
  Transmission Date: 20050107
  Serious: Yes (Other)
  Sender: FDA-Public Use
  Company Number: 200403653

PATIENT
  Age: 15 Year
  Sex: Female

DRUGS (1)
  1. IBUPROFEN [Suspect]
     Dosage: 32 MG/KG PER DAY
     Route: 048

REACTIONS (2)
  - RENAL FAILURE ACUTE [None]
  - WEIGHT DECREASED [None]
